FAERS Safety Report 25951969 (Version 1)
Quarter: 2025Q4

REPORT INFORMATION
  Report Type: Spontaneous
  Country: HK (occurrence: HK)
  Receive Date: 20251023
  Receipt Date: 20251023
  Transmission Date: 20260117
  Serious: Yes (Hospitalization)
  Sender: MYLAN
  Company Number: HK-MYLANLABS-2025M1088878

PATIENT
  Age: 44 Year
  Sex: Male

DRUGS (9)
  1. CLOZAPINE [Suspect]
     Active Substance: CLOZAPINE
     Indication: Schizophrenia
     Dosage: 300 MILLIGRAM, QD
     Dates: start: 2008
  2. CLOZAPINE [Suspect]
     Active Substance: CLOZAPINE
     Dosage: 325 MILLIGRAM, QD
     Dates: start: 20240305
  3. CLOZAPINE [Suspect]
     Active Substance: CLOZAPINE
     Dosage: 12.5 MILLIGRAM, QD
  4. CLOZAPINE [Suspect]
     Active Substance: CLOZAPINE
     Dosage: 25 MILLIGRAM, QW
  5. CLOZAPINE [Suspect]
     Active Substance: CLOZAPINE
     Dosage: 200 MILLIGRAM, QD
  6. CLOZAPINE [Suspect]
     Active Substance: CLOZAPINE
     Dosage: 450 MILLIGRAM, QD
  7. SULPIRIDE [Suspect]
     Active Substance: SULPIRIDE
     Indication: Schizophrenia
     Dosage: 100 MILLIGRAM, QD
     Dates: start: 202312
  8. LORAZEPAM [Suspect]
     Active Substance: LORAZEPAM
     Indication: Schizophrenia
     Dosage: 3 MILLIGRAM, QD
  9. LORAZEPAM [Suspect]
     Active Substance: LORAZEPAM
     Dosage: UP TO 8MG PER DAY

REACTIONS (2)
  - Withdrawal catatonia [Recovering/Resolving]
  - Neuroleptic malignant syndrome [Recovering/Resolving]

NARRATIVE: CASE EVENT DATE: 20240101
